FAERS Safety Report 11414093 (Version 1)
Quarter: 2015Q3

REPORT INFORMATION
  Report Type: Spontaneous
  Country: IE (occurrence: US)
  Receive Date: 20150824
  Receipt Date: 20150824
  Transmission Date: 20151125
  Serious: Yes (Hospitalization)
  Sender: FDA-Public Use
  Company Number: IE-MYLANLABS-2015M1027562

PATIENT

DRUGS (3)
  1. FONDAPARINUX [Suspect]
     Active Substance: FONDAPARINUX
     Indication: PRODUCT USED FOR UNKNOWN INDICATION
     Dosage: 7.5 MG/0.6ML, UNK
     Dates: start: 20111201, end: 20140324
  2. VENTOLIN [Suspect]
     Active Substance: ALBUTEROL SULFATE
     Indication: ASTHMA
     Dosage: UNK
     Route: 055
     Dates: start: 1986
  3. ADVAIR HFA [Suspect]
     Active Substance: FLUTICASONE PROPIONATE\SALMETEROL XINAFOATE
     Indication: PRODUCT USED FOR UNKNOWN INDICATION
     Dosage: UNK
     Route: 055
     Dates: start: 20090401, end: 20140324

REACTIONS (3)
  - Multiple allergies [Not Recovered/Not Resolved]
  - Dyspnoea [Unknown]
  - Treatment noncompliance [Unknown]
